FAERS Safety Report 9255230 (Version 2)
Quarter: 2014Q1

REPORT INFORMATION
  Report Type: Spontaneous
  Country: US (occurrence: None)
  Receive Date: 20121212
  Receipt Date: 20130314
  Transmission Date: 20141002
  Serious: No
  Sender: FDA-Public Use
  Company Number: 1211USA004071

PATIENT
  Age: 68 Year
  Sex: Male

DRUGS (3)
  1. VICTRELIS [Suspect]
     Indication: HEPATITIS C
     Dosage: UNK
     Dates: start: 20121029
  2. RIBAVIRIN [Suspect]
     Indication: HEPATITIS C
     Dosage: UNK
     Dates: start: 20121002
  3. PEGASYS [Suspect]
     Indication: HEPATITIS C
     Dosage: UNK
     Dates: start: 20121002

REACTIONS (9)
  - Eating disorder [None]
  - White blood cell count decreased [None]
  - Flatulence [None]
  - Abdominal discomfort [None]
  - Nausea [None]
  - Diarrhoea [None]
  - Dysgeusia [None]
  - Swelling [None]
  - Gastrointestinal disorder [None]
